FAERS Safety Report 4555625-X (Version None)
Quarter: 2005Q1

REPORT INFORMATION
  Report Type: 
  Country: None (occurrence: None)
  Receive Date: 20050118
  Receipt Date: 20050118
  Transmission Date: 20050727
  Serious: Yes (Other)
  Sender: FDA-Public Use
  Company Number: None

PATIENT
  Age: 50 Year
  Sex: Female
  Weight: 50.8029 kg

DRUGS (2)
  1. CITRICAL +D   640MG CA [Suspect]
     Indication: HORMONE REPLACEMENT THERAPY
     Dosage: 1 QD ORAL
     Route: 048
     Dates: start: 20050101, end: 20050114
  2. CITRICAL +D   640MG CA [Suspect]
     Indication: OSTEOPOROSIS PROPHYLAXIS
     Dosage: 1 QD ORAL
     Route: 048
     Dates: start: 20050101, end: 20050114

REACTIONS (3)
  - ABDOMINAL DISTENSION [None]
  - ABDOMINAL PAIN UPPER [None]
  - VOMITING [None]
